FAERS Safety Report 5422355-1 (Version None)
Quarter: 2007Q3

REPORT INFORMATION
  Report Type: 
  Country: None (occurrence: None)
  Receive Date: 20070820
  Receipt Date: 20070803
  Transmission Date: 20080115
  Serious: Yes (Other)
  Sender: FDA-Public Use
  Company Number: 2007RR-09211

PATIENT
  Age: 7 Year
  Sex: Male

DRUGS (3)
  1. DICLOFENAC SODIUM           (DICLOFENAC) [Suspect]
     Dosage: RECTAL
     Route: 054
  2. IBUPROFEN [Suspect]
     Dosage: 10 MG/KG, TID
  3. INDOMETHACIN [Suspect]
     Dosage: 25 MG, BID

REACTIONS (1)
  - RENAL FAILURE ACUTE [None]
